FAERS Safety Report 24040773 (Version 1)
Quarter: 2024Q3

REPORT INFORMATION
  Report Type: Spontaneous
  Country: CN (occurrence: CN)
  Receive Date: 20240702
  Receipt Date: 20240702
  Transmission Date: 20241016
  Serious: Yes (Hospitalization)
  Sender: SANOFI AVENTIS
  Company Number: CN-SA-SAC20240626000962

PATIENT
  Age: 59 Year
  Sex: Female
  Weight: 53 kg

DRUGS (1)
  1. CLOPIDOGREL BISULFATE [Suspect]
     Active Substance: CLOPIDOGREL BISULFATE
     Indication: Antiplatelet therapy
     Dosage: 75 MG, QD
     Route: 048
     Dates: start: 20240527, end: 20240531

REACTIONS (4)
  - Muscular weakness [Recovering/Resolving]
  - Skin ulcer [Recovering/Resolving]
  - Rash [Recovering/Resolving]
  - Haemorrhage subcutaneous [Recovering/Resolving]

NARRATIVE: CASE EVENT DATE: 20240528
